FAERS Safety Report 22658304 (Version 2)
Quarter: 2024Q3

REPORT INFORMATION
  Report Type: Spontaneous
  Country: BR (occurrence: BR)
  Receive Date: 20230630
  Receipt Date: 20240822
  Transmission Date: 20241017
  Serious: Yes (Other)
  Sender: CELLTRION
  Company Number: BR-CELLTRION INC.-2023BR012364

PATIENT

DRUGS (16)
  1. INFLIXIMAB [Suspect]
     Active Substance: INFLIXIMAB
     Indication: Ankylosing spondylitis
     Dosage: 5 AMPOULES EVERY 2 MONTHS
     Route: 042
     Dates: start: 20230411
  2. INFLIXIMAB [Suspect]
     Active Substance: INFLIXIMAB
     Dosage: 5 AMPOULES EVERY 2 MONTHS
     Route: 042
     Dates: start: 20240808
  3. TRAMADOL [Concomitant]
     Active Substance: TRAMADOL\TRAMADOL HYDROCHLORIDE
     Indication: Ankylosing spondylitis
     Dosage: 50 MG, 2 PILLS A DAY (STARTED 6 MONTHS AGO)
     Route: 048
  4. TRAMADOL [Concomitant]
     Active Substance: TRAMADOL\TRAMADOL HYDROCHLORIDE
     Dosage: 100 MG, 2 TABLETS PER DAY
     Route: 048
  5. IBUPROFEN [Concomitant]
     Active Substance: IBUPROFEN
     Indication: Ankylosing spondylitis
     Dosage: 3 PILLS A DAY (STARTED 6 MONTHS AGO)(HAD STOPPED USING IBUPROFEN 750 MG 4 MONTHS AGO)
     Route: 048
  6. OLMESARTANA MEDOXOMILA + HIDROCLOROTIAZIDA [Concomitant]
     Indication: Hypertension
     Dosage: 2 PILLS A DAY (STARTED 3 YEARS AGO)(2 TABLETS PER DAY OF 20/12.5MG)
     Route: 048
  7. OLMESARTANA MEDOXOMILA + HIDROCLOROTIAZIDA [Concomitant]
     Dosage: 40/20MG 1 TABLET PER DAY
     Route: 048
  8. ALPRAZOLAM [Concomitant]
     Active Substance: ALPRAZOLAM
     Indication: Insomnia
     Dosage: 2 MG, 1 PILL A DAY FOR APPROXIMATELY 8 MONTHS
     Route: 048
     Dates: start: 2019
  9. ALPRAZOLAM [Concomitant]
     Active Substance: ALPRAZOLAM
     Dosage: 1 MG FOR THE PAST 2-4 MONTHS
     Route: 048
  10. ALPRAZOLAM [Concomitant]
     Active Substance: ALPRAZOLAM
     Dosage: 0.5 MG
     Route: 048
  11. TRAZODONE [Concomitant]
     Active Substance: TRAZODONE HYDROCHLORIDE
     Indication: Insomnia
     Dosage: TAKING 1 TABLET AT 10 PM (STARTED 8 MONTHS AGO)
  12. MELATONIN [Concomitant]
     Active Substance: MELATONIN
     Indication: Insomnia
     Dosage: TAKING 1 TABLET AT 7 PM (STARTED 8 MONTHS AGO)
  13. DULOXETINE [Concomitant]
     Active Substance: DULOXETINE
     Indication: Pain
     Dosage: 1 TABLET OF 30 MG IN THE MORNING (STARTED A YEAR AGO)
     Route: 048
  14. DULOXETINE [Concomitant]
     Active Substance: DULOXETINE
     Indication: Spondylitis
     Dosage: 1 TABLET OF 60 MG AT LUNCHTIME (STARTED A YEAR AGO)
     Route: 048
  15. DIPYRONE [Concomitant]
     Active Substance: DIPYRONE
     Dosage: 500 MG, ONCE A DAY FOR THE PAST 3-4 MONTHS
  16. AMLODIPINE BESYLATE [Concomitant]
     Active Substance: AMLODIPINE BESYLATE
     Indication: Hypertension
     Dosage: 1 PILL A DAY (STARTED 4 YEARS AGO)
     Route: 048

REACTIONS (13)
  - Hypersensitivity [Recovering/Resolving]
  - Headache [Recovering/Resolving]
  - Pain in extremity [Unknown]
  - Spinal pain [Unknown]
  - Bone pain [Unknown]
  - Malaise [Recovering/Resolving]
  - Vocal cord inflammation [Recovering/Resolving]
  - Pain [Unknown]
  - Back pain [Unknown]
  - Joint swelling [Unknown]
  - Eye disorder [Unknown]
  - Intentional dose omission [Recovering/Resolving]
  - Therapy partial responder [Unknown]

NARRATIVE: CASE EVENT DATE: 20230525
